FAERS Safety Report 16970617 (Version 1)
Quarter: 2019Q4

REPORT INFORMATION
  Report Type: Spontaneous
  Country: JP (occurrence: JP)
  Receive Date: 20191029
  Receipt Date: 20191029
  Transmission Date: 20200122
  Serious: Yes (Hospitalization)
  Sender: FDA-Public Use
  Company Number: JP-AVION PHARMACEUTICALS, LLC-2076139

PATIENT
  Age: 16 Year
  Sex: Female

DRUGS (1)
  1. BALCOLTRA [Suspect]
     Active Substance: ETHINYL ESTRADIOL\LEVONORGESTREL
     Indication: DYSMENORRHOEA
     Route: 065

REACTIONS (2)
  - Abdominal pain [Recovered/Resolved]
  - Nerve compression [Recovered/Resolved]
